FAERS Safety Report 23224465 (Version 1)
Quarter: 2023Q4

REPORT INFORMATION
  Report Type: Spontaneous
  Country: US (occurrence: US)
  Receive Date: 20231124
  Receipt Date: 20231124
  Transmission Date: 20240110
  Serious: No
  Sender: FDA-Public Use
  Company Number: US-SA-2023SA136247

PATIENT
  Age: 90 Year
  Sex: Female

DRUGS (3)
  1. LIDOCAINE [Suspect]
     Active Substance: LIDOCAINE
     Indication: Back pain
     Dosage: DOSE DESCRIPTION : UNK
     Route: 065
  2. DUPILUMAB [Suspect]
     Active Substance: DUPILUMAB
     Indication: Dermatitis
     Dosage: DOSE DESCRIPTION : 300 MG, QOW
     Route: 058
     Dates: start: 20221231
  3. DUPILUMAB [Suspect]
     Active Substance: DUPILUMAB
     Indication: Dermatitis atopic

REACTIONS (6)
  - Product use in unapproved indication [Unknown]
  - Accident [Unknown]
  - Fall [Unknown]
  - Back pain [Unknown]
  - Rash [Recovering/Resolving]
  - Gait disturbance [Unknown]

NARRATIVE: CASE EVENT DATE: 20221231
